FAERS Safety Report 4821671-1 (Version None)
Quarter: 2005Q4

REPORT INFORMATION
  Report Type: 
  Country: None (occurrence: None)
  Receive Date: 20051103
  Receipt Date: 20051103
  Transmission Date: 20060501
  Serious: Yes (Hospitalization)
  Sender: FDA-Public Use
  Company Number: None

PATIENT
  Age: 7 Month
  Sex: Male

DRUGS (1)
  1. RILUTEK [Suspect]
     Indication: SPINAL MUSCULAR ATROPHY
     Dosage: 20 MG  TWICE A DAY OTHER
     Dates: start: 20050722, end: 20050825

REACTIONS (2)
  - ASPIRATION [None]
  - GASTROINTESTINAL TUBE INSERTION [None]
